FAERS Safety Report 4930729-8 (Version None)
Quarter: 2006Q1

REPORT INFORMATION
  Report Type: 
  Country: None (occurrence: None)
  Receive Date: 20060227
  Receipt Date: 20060215
  Transmission Date: 20060701
  Serious: Yes (Other)
  Sender: FDA-Public Use
  Company Number: 2006024147

PATIENT
  Age: 48 Year
  Sex: Female
  Weight: 96.6162 kg

DRUGS (7)
  1. LIPITOR [Suspect]
     Indication: BLOOD CHOLESTEROL INCREASED
     Dosage: 40 MG (40 MG, 1 IN 1 D), ORAL
     Route: 048
  2. GLUCOTROL XL [Suspect]
     Indication: DIABETES MELLITUS
     Dosage: 40 MG (20 MG, 2 IN 1 D), ORAL
     Route: 048
     Dates: start: 20030101
  3. VALSARTAN [Concomitant]
  4. PRILOSEC [Concomitant]
  5. ATENOLOL [Concomitant]
  6. LASIX [Concomitant]
  7. ZOLOFT [Suspect]
     Indication: DEPRESSION
     Dosage: 200 MG, ORAL
     Route: 048

REACTIONS (11)
  - ACCIDENT AT WORK [None]
  - ANXIETY [None]
  - ARTHRITIS [None]
  - BACK INJURY [None]
  - DEPRESSION [None]
  - DIABETES MELLITUS NON-INSULIN-DEPENDENT [None]
  - DRUG INEFFECTIVE [None]
  - EXOSTOSIS [None]
  - INTERVERTEBRAL DISC PROTRUSION [None]
  - NEURALGIA [None]
  - SENSATION OF PRESSURE [None]
